FAERS Safety Report 14336605 (Version 3)
Quarter: 2018Q1

REPORT INFORMATION
  Report Type: Spontaneous
  Country: US (occurrence: US)
  Receive Date: 20171229
  Receipt Date: 20180104
  Transmission Date: 20180509
  Serious: Yes (Other)
  Sender: FDA-Public Use
  Company Number: US-PFIZER INC-2017550569

PATIENT
  Age: 49 Year
  Sex: Male

DRUGS (1)
  1. BUPIVACAINE HYDROCHLORIDE/EPINEPHRINE [Suspect]
     Active Substance: BUPIVACAINE HYDROCHLORIDE\EPINEPHRINE
     Indication: ANAESTHESIA
     Dosage: BUPIVACAINE 0.1% WITH EPINEPHRINE 2MCG/ML; 5ML/H
     Route: 008

REACTIONS (1)
  - Spinal cord ischaemia [Unknown]
